FAERS Safety Report 7890131-6 (Version None)
Quarter: 2011Q4

REPORT INFORMATION
  Report Type: 
  Country: None (occurrence: None)
  Receive Date: 20111103
  Receipt Date: 20111101
  Transmission Date: 20120403
  Serious: Yes (Hospitalization)
  Sender: FDA-Public Use
  Company Number: US-ABBOTT-11P-163-0865191-00

PATIENT
  Sex: Female
  Weight: 51 kg

DRUGS (3)
  1. ALBUTEROL [Concomitant]
     Indication: ASTHMA
  2. HUMIRA [Suspect]
     Dosage: LOADING DOSE
     Dates: start: 20111004, end: 20111004
  3. HUMIRA [Suspect]
     Indication: CROHN'S DISEASE
     Dates: start: 20101201, end: 20101201

REACTIONS (10)
  - ARTHRALGIA [None]
  - BACK PAIN [None]
  - INTESTINAL OBSTRUCTION [None]
  - DRUG INEFFECTIVE [None]
  - SINUSITIS [None]
  - INCREASED UPPER AIRWAY SECRETION [None]
  - NASOPHARYNGITIS [None]
  - INFLUENZA LIKE ILLNESS [None]
  - RHINORRHOEA [None]
  - PAIN IN EXTREMITY [None]
